FAERS Safety Report 7712197 (Version 6)
Quarter: 2013Q1

REPORT INFORMATION
  Report Type: Other
  Country: JP (occurrence: JP)
  Receive Date: 20101215
  Receipt Date: 20130123
  Transmission Date: 20140127
  Serious: Yes (Hospitalization)
  Sender: FDA-Public Use
  Company Number: JP-BRISTOL-MYERS SQUIBB COMPANY-15430465

PATIENT
  Age: 29 Year
  Sex: Male
  Weight: 51 kg

DRUGS (3)
  1. STOCRIN TABS [Suspect]
     Indication: HIV TEST POSITIVE
     Dosage: TABS 200.?26JAN-26JAN2010?18G
     Route: 048
     Dates: start: 200906, end: 20100126
  2. TRUVADA [Suspect]
     Indication: HIV TEST POSITIVE
     Dosage: 1DF=30 TABLETS.UNIT NOT SPECIFIED. FORMULATION IS TAB?26JAN-26JAN10
     Route: 048
     Dates: start: 200906, end: 20100126
  3. ISENTRESS [Concomitant]
     Indication: HIV INFECTION
     Route: 048
     Dates: start: 20100127

REACTIONS (8)
  - Suicide attempt [Recovered/Resolved]
  - Intentional overdose [Unknown]
  - Drug level increased [Recovered/Resolved]
  - Psychiatric symptom [Unknown]
  - Diarrhoea [Unknown]
  - Vomiting [Unknown]
  - Faeces pale [Unknown]
  - Blood creatine phosphokinase increased [Recovered/Resolved]
